FAERS Safety Report 8339850-8 (Version None)
Quarter: 2012Q2

REPORT INFORMATION
  Report Type: 
  Country: None (occurrence: None)
  Receive Date: 20120507
  Receipt Date: 20120501
  Transmission Date: 20120825
  Serious: Yes (Hospitalization, Other)
  Sender: FDA-Public Use
  Company Number: US-PFIZER INC-2012107231

PATIENT
  Sex: Male
  Weight: 86.168 kg

DRUGS (1)
  1. LYRICA [Suspect]
     Indication: NEURALGIA
     Dosage: 200 MG, 2X/DAY
     Route: 048
     Dates: start: 20110101

REACTIONS (6)
  - VISION BLURRED [None]
  - THERAPEUTIC RESPONSE UNEXPECTED [None]
  - PNEUMONIA ASPIRATION [None]
  - INCREASED APPETITE [None]
  - MALAISE [None]
  - DRUG INEFFECTIVE [None]
